FAERS Safety Report 9976890 (Version 1)
Quarter: 2014Q1

REPORT INFORMATION
  Report Type: Report from Study
  Country: US (occurrence: US)
  Receive Date: 20140306
  Receipt Date: 20140306
  Transmission Date: 20141002
  Serious: No
  Sender: FDA-Public Use
  Company Number: US-ABBVIE-13P-163-1166113-00

PATIENT
  Age: 60 Year
  Sex: Female

DRUGS (11)
  1. HUMIRA [Suspect]
     Indication: RHEUMATOID ARTHRITIS
     Dates: start: 20131024
  2. ATENOLOL [Concomitant]
     Indication: HYPERTENSION
     Route: 048
  3. NIACIN [Concomitant]
     Indication: HYPERTENSION
     Dosage: EXTENDED RELEASE TABLETS, 1 DAILY
     Route: 048
  4. HYDROCHLOROTHIAZIDE [Concomitant]
     Indication: HYPERTENSION
     Route: 048
  5. TRAZODONE [Concomitant]
     Indication: INSOMNIA
     Dosage: AT BEDTIME
     Route: 048
  6. HYDROCODONE [Concomitant]
     Indication: BREAKTHROUGH PAIN
     Dosage: 5/500MG, 1 AS NEEDED
     Route: 048
  7. MORPHINE [Concomitant]
     Indication: PAIN
     Route: 048
  8. LIDODERM [Concomitant]
     Indication: PAIN
     Dosage: 5% PATCHES, AS NEEDED TO BACK
  9. LEFLUNOMIDE [Concomitant]
     Indication: RHEUMATOID ARTHRITIS
  10. PREDNISONE [Concomitant]
     Indication: RHEUMATOID ARTHRITIS
  11. CLONAZEPAM [Concomitant]
     Indication: ANXIETY
     Dosage: UP TO TWICE DAILY IF NEEDED

REACTIONS (1)
  - Hypertension [Not Recovered/Not Resolved]
